FAERS Safety Report 7355279-3 (Version None)
Quarter: 2011Q1

REPORT INFORMATION
  Report Type: 
  Country: None (occurrence: None)
  Receive Date: 20110316
  Receipt Date: 20110310
  Transmission Date: 20110831
  Serious: Yes (Life-Threatening, Other)
  Sender: FDA-Public Use
  Company Number: JP-ROCHE-637901

PATIENT
  Sex: Female
  Weight: 47 kg

DRUGS (14)
  1. RIZE [Concomitant]
     Dosage: DOSE FORM: PERORAL AGENT
     Route: 048
  2. TOCILIZUMAB [Suspect]
     Indication: RHEUMATOID ARTHRITIS
     Route: 041
     Dates: start: 20081014, end: 20081014
  3. TOCILIZUMAB [Suspect]
     Route: 041
     Dates: start: 20081210, end: 20081210
  4. METHOTREXATE [Suspect]
     Indication: RHEUMATOID ARTHRITIS
     Route: 048
  5. LOXONIN [Concomitant]
     Dosage: DOSE FORM: PERORAL AGENT
     Route: 048
  6. HALCION [Concomitant]
     Route: 048
  7. TOCILIZUMAB [Suspect]
     Route: 041
     Dates: start: 20090401, end: 20090401
  8. PREDNISOLONE [Suspect]
     Indication: RHEUMATOID ARTHRITIS
     Dosage: DOSE FORM: PERORAL AGENT
     Route: 048
  9. VOLTAREN [Concomitant]
     Route: 054
  10. TOCILIZUMAB [Suspect]
     Route: 041
     Dates: start: 20081112, end: 20081112
  11. TOCILIZUMAB [Suspect]
     Route: 041
     Dates: start: 20090204, end: 20090204
  12. TOCILIZUMAB [Suspect]
     Route: 041
     Dates: start: 20090107, end: 20090107
  13. TOCILIZUMAB [Suspect]
     Route: 041
     Dates: start: 20090304, end: 20090304
  14. FOLIAMIN [Concomitant]
     Dosage: DOSE FORM: PERORAL AGENT
     Route: 048

REACTIONS (3)
  - PYREXIA [None]
  - DIVERTICULITIS [None]
  - BLOOD CREATININE DECREASED [None]
